FAERS Safety Report 7274887-1 (Version None)
Quarter: 2011Q1

REPORT INFORMATION
  Report Type: 
  Country: None (occurrence: None)
  Receive Date: 20110202
  Receipt Date: 20110202
  Transmission Date: 20110831
  Serious: Yes (Hospitalization)
  Sender: FDA-Public Use
  Company Number: None

PATIENT
  Sex: Female
  Weight: 72.5755 kg

DRUGS (2)
  1. TOPIRAMATE [Suspect]
     Indication: MAJOR DEPRESSION
     Dosage: 1 TABLET 2XDAILY PO
     Route: 048
     Dates: start: 20100401, end: 20100704
  2. TOPIRAMATE [Suspect]
     Indication: MAJOR DEPRESSION
     Dosage: 1 TABLET 2XDAILY PO
     Route: 048
     Dates: start: 20110101, end: 20110201

REACTIONS (5)
  - SUICIDAL IDEATION [None]
  - ECONOMIC PROBLEM [None]
  - SUICIDE ATTEMPT [None]
  - DEPRESSION [None]
  - PRODUCT SUBSTITUTION ISSUE [None]
